FAERS Safety Report 7139216-2 (Version None)
Quarter: 2010Q4

REPORT INFORMATION
  Report Type: 
  Country: None (occurrence: None)
  Receive Date: 20101206
  Receipt Date: 20101124
  Transmission Date: 20110411
  Serious: Yes (Death, Hospitalization)
  Sender: FDA-Public Use
  Company Number: US-ROCHE-635039

PATIENT
  Sex: Male

DRUGS (8)
  1. BEVACIZUMAB [Suspect]
     Dosage: 15 MG/KG, UNK, LAST DOSE PRIOR TO SAE: 01 MAY 2009
     Route: 042
     Dates: start: 20090427
  2. TOPOTECAN [Suspect]
     Dosage: 2.3 MG/M2, UNK, LAST DOSE PRIOR TO SAE: 01 MAY 2009
     Route: 048
     Dates: start: 20090427, end: 20090501
  3. ESOMEPRAZOLE [Concomitant]
  4. METOPROLOL SUCCINATE [Concomitant]
  5. OXYCODONE HYDROCHLORIDE [Concomitant]
  6. ACETAMINOPHEN [Concomitant]
  7. POTASSIUM CHLORIDE [Concomitant]
  8. MUPIROCIN [Concomitant]

REACTIONS (7)
  - BLOOD CREATININE INCREASED [None]
  - COUGH [None]
  - DIARRHOEA [None]
  - DYSPHONIA [None]
  - INTERNATIONAL NORMALISED RATIO INCREASED [None]
  - PLEURAL EFFUSION [None]
  - SEPSIS [None]
